FAERS Safety Report 21686092 (Version 1)
Quarter: 2022Q4

REPORT INFORMATION
  Report Type: Spontaneous
  Country: CH (occurrence: None)
  Receive Date: 20221206
  Receipt Date: 20221206
  Transmission Date: 20230112
  Serious: Yes (Other)
  Sender: FDA-Public Use
  Company Number: CH-ROCHE-3229035

PATIENT
  Sex: Male
  Weight: 84 kg

DRUGS (1)
  1. OCREVUS [Suspect]
     Active Substance: OCRELIZUMAB
     Indication: Multiple sclerosis
     Route: 065
     Dates: start: 202102

REACTIONS (4)
  - Headache [Unknown]
  - Hypoaesthesia [Unknown]
  - COVID-19 [Unknown]
  - Multiple sclerosis relapse [Unknown]
